FAERS Safety Report 24146966 (Version 2)
Quarter: 2024Q4

REPORT INFORMATION
  Report Type: Spontaneous
  Country: CA (occurrence: CA)
  Receive Date: 20240729
  Receipt Date: 20241003
  Transmission Date: 20250114
  Serious: Yes (Other)
  Sender: NOVARTIS
  Company Number: CA-002147023-NVSC2024CA151820

PATIENT
  Sex: Female

DRUGS (1)
  1. BASILIXIMAB [Suspect]
     Active Substance: BASILIXIMAB
     Indication: Graft versus host disease
     Dosage: 10 MG, BIW
     Route: 042

REACTIONS (2)
  - Immunodeficiency [Unknown]
  - Vomiting [Unknown]
